FAERS Safety Report 5147398-7 (Version None)
Quarter: 2006Q4

REPORT INFORMATION
  Report Type: 
  Country: None (occurrence: None)
  Receive Date: 20061106
  Receipt Date: 20061027
  Transmission Date: 20070319
  Serious: Yes (Other)
  Sender: FDA-Public Use
  Company Number: 2006132497

PATIENT
  Age: 24 Year
  Sex: Female
  Weight: 72.5755 kg

DRUGS (2)
  1. ZOLOFT [Suspect]
     Indication: ANXIETY
     Dates: start: 20020801
  2. ZOLOFT [Suspect]
     Indication: DEPRESSION
     Dates: start: 20020801

REACTIONS (7)
  - BLOOD CHOLESTEROL INCREASED [None]
  - DRUG EXPOSURE DURING PREGNANCY [None]
  - FATIGUE [None]
  - INJURY [None]
  - MEMORY IMPAIRMENT [None]
  - VENTRICULO-PERITONEAL SHUNT [None]
  - WEIGHT INCREASED [None]
